FAERS Safety Report 10660135 (Version 2)
Quarter: 2014Q4

REPORT INFORMATION
  Report Type: Spontaneous
  Country: US (occurrence: US)
  Receive Date: 20141217
  Receipt Date: 20141217
  Transmission Date: 20150529
  Serious: Yes (Other)
  Sender: FDA-Public Use
  Company Number: US-CELGENEUS-163-20785-14013676

PATIENT
  Sex: Female

DRUGS (7)
  1. PROLIA [Suspect]
     Active Substance: DENOSUMAB
     Indication: SYSTEMIC LUPUS ERYTHEMATOSUS
     Route: 048
     Dates: start: 2001
  2. PROLIA [Suspect]
     Active Substance: DENOSUMAB
     Route: 048
     Dates: start: 200811
  3. THALOMID [Suspect]
     Active Substance: THALIDOMIDE
     Route: 048
     Dates: start: 201403
  4. THALOMID [Suspect]
     Active Substance: THALIDOMIDE
     Indication: SYSTEMIC LUPUS ERYTHEMATOSUS
     Route: 048
     Dates: start: 2001
  5. THALOMID [Suspect]
     Active Substance: THALIDOMIDE
     Route: 048
     Dates: start: 200603
  6. THALOMID [Suspect]
     Active Substance: THALIDOMIDE
     Route: 048
     Dates: start: 200811, end: 20131219
  7. PROLIA [Suspect]
     Active Substance: DENOSUMAB
     Route: 048
     Dates: start: 200603

REACTIONS (10)
  - Feeling abnormal [Unknown]
  - Tooth disorder [Unknown]
  - Epistaxis [Unknown]
  - Confusional state [Unknown]
  - Urinary tract infection [Unknown]
  - Renal failure [Unknown]
  - Withdrawal syndrome [Unknown]
  - Pyrexia [Unknown]
  - Somnolence [Unknown]
  - Insomnia [Unknown]

NARRATIVE: CASE EVENT DATE: 2006
